FAERS Safety Report 14677043 (Version 1)
Quarter: 2018Q1

REPORT INFORMATION
  Report Type: Spontaneous
  Country: CH (occurrence: CH)
  Receive Date: 20180324
  Receipt Date: 20180324
  Transmission Date: 20180509
  Serious: Yes (Hospitalization, Disabling)
  Sender: FDA-Public Use
  Company Number: CH-ABBVIE-18S-151-2297132-00

PATIENT
  Age: 55 Year
  Sex: Male

DRUGS (7)
  1. DESCOVY [Suspect]
     Active Substance: EMTRICITABINE\TENOFOVIR ALAFENAMIDE FUMARATE
     Indication: HIV INFECTION
     Dosage: EMITRICITABINE 200MG??TENOFOVIR ALAFNEAMIDE 10MG
     Route: 048
     Dates: start: 201710
  2. CALCIMAGON D3 FORTE [Concomitant]
     Indication: BLOOD CALCIUM DECREASED
  3. PREGABALIN. [Suspect]
     Active Substance: PREGABALIN
     Indication: HIV PERIPHERAL NEUROPATHY
     Route: 048
     Dates: start: 201703
  4. NORVIR [Suspect]
     Active Substance: RITONAVIR
     Indication: HIV INFECTION
     Route: 048
  5. ACIDUM FOLICUM [Concomitant]
     Active Substance: FOLIC ACID
     Indication: FOLATE DEFICIENCY
  6. PREZISTA [Suspect]
     Active Substance: DARUNAVIR ETHANOLATE
     Indication: HIV INFECTION
     Route: 048
  7. DAFALGAN [Concomitant]
     Active Substance: ACETAMINOPHEN
     Indication: PAIN
     Dosage: NOT MORE THAN 4 PER DAY
     Route: 048

REACTIONS (1)
  - Tremor [Not Recovered/Not Resolved]

NARRATIVE: CASE EVENT DATE: 201710
